FAERS Safety Report 4475601-5 (Version None)
Quarter: 2004Q4

REPORT INFORMATION
  Report Type: 
  Country: None (occurrence: None)
  Receive Date: 20041015
  Receipt Date: 20041005
  Transmission Date: 20050328
  Serious: Yes (Hospitalization)
  Sender: FDA-Public Use
  Company Number: CA-BRISTOL-MYERS SQUIBB COMPANY-12721387

PATIENT
  Age: 72 Year
  Sex: Female

DRUGS (10)
  1. CARBOPLATIN [Suspect]
     Indication: OVARIAN CANCER
     Dosage: 1ST CYCLE: 14JUL03
     Route: 042
     Dates: start: 20030804, end: 20030804
  2. PACLITAXEL [Suspect]
     Indication: OVARIAN CANCER
     Dosage: 1ST CYCLE: 14JUL03
     Route: 042
     Dates: start: 20030804, end: 20030804
  3. INTERFERON GAMMA [Suspect]
     Indication: OVARIAN CANCER
     Dosage: 1ST CYCLE: 14JUL03
     Route: 058
     Dates: start: 20030815, end: 20030815
  4. K-DUR 10 [Concomitant]
     Dates: start: 20030809
  5. MAGLUCATE [Concomitant]
     Dates: start: 20030809
  6. ZANTAC [Concomitant]
     Dates: start: 20030708
  7. FLAGYL [Concomitant]
     Dates: start: 20030727, end: 20030805
  8. TYLENOL [Concomitant]
     Dates: start: 20030714
  9. COLACE [Concomitant]
     Dates: start: 20030724
  10. CALCIUM [Concomitant]
     Dates: start: 19991101

REACTIONS (4)
  - ANAEMIA [None]
  - FEBRILE NEUTROPENIA [None]
  - MALNUTRITION [None]
  - THROMBOCYTOPENIA [None]
